FAERS Safety Report 10619764 (Version 1)
Quarter: 2014Q4

REPORT INFORMATION
  Report Type: Spontaneous
  Country: US (occurrence: None)
  Receive Date: 20141201
  Receipt Date: 20141201
  Transmission Date: 20150529
  Serious: No
  Sender: FDA-Public Use
  Company Number: None

PATIENT
  Age: 32 Year
  Sex: Female
  Weight: 68.04 kg

DRUGS (1)
  1. METAXALONE. [Suspect]
     Active Substance: METAXALONE
     Indication: MYALGIA
     Route: 048
     Dates: start: 20141124, end: 20141129

REACTIONS (1)
  - Insomnia [None]

NARRATIVE: CASE EVENT DATE: 20141129
